FAERS Safety Report 9581328 (Version 2)
Quarter: 2013Q4

REPORT INFORMATION
  Report Type: Spontaneous
  Country: US (occurrence: US)
  Receive Date: 20131002
  Receipt Date: 20131023
  Transmission Date: 20140711
  Serious: Yes (Death)
  Sender: FDA-Public Use
  Company Number: US-GLAXOSMITHKLINE-A1043098A

PATIENT
  Age: 77 Year
  Sex: Male

DRUGS (4)
  1. ARIXTRA [Suspect]
     Indication: THROMBOSIS
     Dosage: 7.5MG PER DAY
     Route: 058
     Dates: start: 2012, end: 20130913
  2. MORPHINE [Concomitant]
  3. LORAZEPAM [Concomitant]
  4. ATROPINE [Concomitant]

REACTIONS (2)
  - Hepatic failure [Fatal]
  - Colon cancer [Fatal]
